FAERS Safety Report 24243114 (Version 1)
Quarter: 2024Q3

REPORT INFORMATION
  Report Type: Report from Study
  Country: CA (occurrence: None)
  Receive Date: 20240823
  Receipt Date: 20240823
  Transmission Date: 20241017
  Serious: Yes (Death, Hospitalization)
  Sender: ASTRAZENECA
  Company Number: 2024A189316

PATIENT
  Age: 24617 Day
  Sex: Female

DRUGS (4)
  1. FASENRA [Suspect]
     Active Substance: BENRALIZUMAB
     Indication: Asthma
     Route: 058
     Dates: start: 20220817
  2. VENTOLIN [Concomitant]
     Active Substance: ALBUTEROL SULFATE
  3. BREO-ELLIPTA [Concomitant]
     Dosage: 1 PUFF OD
  4. PREDNISONE [Concomitant]
     Active Substance: PREDNISONE
     Dosage: 1 PUFF OD

REACTIONS (1)
  - Death [Fatal]

NARRATIVE: CASE EVENT DATE: 20240818
